FAERS Safety Report 7194682-1 (Version None)
Quarter: 2010Q4

REPORT INFORMATION
  Report Type: 
  Country: None (occurrence: None)
  Receive Date: 20101223
  Receipt Date: 20100915
  Transmission Date: 20110411
  Serious: No
  Sender: FDA-Public Use
  Company Number: US-AMGEN-TCS438679

PATIENT

DRUGS (1)
  1. ENBREL [Suspect]
     Indication: JUVENILE ARTHRITIS
     Dosage: UNK UNK, UNK

REACTIONS (2)
  - INJECTION SITE PRURITUS [None]
  - INJECTION SITE SWELLING [None]
